FAERS Safety Report 15490777 (Version 2)
Quarter: 2018Q4

REPORT INFORMATION
  Report Type: Report from Study
  Country: None (occurrence: US)
  Receive Date: 20181011
  Receipt Date: 20181019
  Transmission Date: 20190205
  Serious: Yes (Other)
  Sender: FDA-Public Use
  Company Number: US-ABBVIE-18K-163-2513669-00

PATIENT
  Age: 30 Year
  Sex: Female
  Weight: 54.48 kg

DRUGS (1)
  1. HUMIRA [Suspect]
     Active Substance: ADALIMUMAB
     Indication: CROHN^S DISEASE
     Route: 058
     Dates: start: 201711

REACTIONS (4)
  - Hypoaesthesia [Unknown]
  - Stargardt^s disease [Unknown]
  - Vision blurred [Not Recovered/Not Resolved]
  - Paraesthesia [Not Recovered/Not Resolved]

NARRATIVE: CASE EVENT DATE: 201712
